FAERS Safety Report 4994844-5 (Version None)
Quarter: 2006Q2

REPORT INFORMATION
  Report Type: 
  Country: None (occurrence: None)
  Receive Date: 20060503
  Receipt Date: 20060419
  Transmission Date: 20061013
  Serious: Yes (Other)
  Sender: FDA-Public Use
  Company Number: US200604003250

PATIENT
  Sex: Female

DRUGS (6)
  1. CYMBALTA [Suspect]
     Indication: DEPRESSION
     Dosage: 60 MG, DAILY (1/D),
     Dates: start: 20030101
  2. PREDNISONE TAB [Concomitant]
  3. VERAPAMIL [Concomitant]
  4. MAVIK [Concomitant]
  5. BETA BLOCKING AGENTS [Concomitant]
  6. ANTIHYPERTENSIVES [Concomitant]

REACTIONS (2)
  - HYPERTENSION [None]
  - PNEUMONIA [None]
